FAERS Safety Report 9273130 (Version 1)
Quarter: 2013Q2

REPORT INFORMATION
  Report Type: Spontaneous
  Country: US (occurrence: US)
  Receive Date: 20130506
  Receipt Date: 20130506
  Transmission Date: 20140414
  Serious: No
  Sender: FDA-Public Use
  Company Number: US-AMGEN-USASP2013023337

PATIENT
  Age: 54 Year
  Sex: Female

DRUGS (1)
  1. ENBREL [Suspect]
     Indication: PSORIASIS
     Dosage: 50 MG, PER WEEK
     Dates: start: 20070320

REACTIONS (8)
  - Cough [Recovered/Resolved]
  - Sneezing [Recovered/Resolved]
  - Headache [Recovered/Resolved]
  - Nasal congestion [Recovered/Resolved]
  - Incorrect dose administered [Unknown]
  - Stress [Not Recovered/Not Resolved]
  - Tooth abscess [Recovered/Resolved]
  - Psoriasis [Not Recovered/Not Resolved]
